FAERS Safety Report 18323537 (Version 1)
Quarter: 2020Q3

REPORT INFORMATION
  Report Type: Spontaneous
  Country: US (occurrence: US)
  Receive Date: 20200928
  Receipt Date: 20200928
  Transmission Date: 20201103
  Serious: No
  Sender: FDA-Public Use
  Company Number: US-MILLICENT HOLDINGS LTD.-MILL20200952

PATIENT
  Age: 57 Year
  Sex: Female

DRUGS (2)
  1. INTRAROSA [Suspect]
     Active Substance: PRASTERONE
     Indication: DYSPAREUNIA
  2. INTRAROSA [Suspect]
     Active Substance: PRASTERONE
     Indication: URINARY TRACT DISORDER
     Route: 067

REACTIONS (1)
  - Off label use [Unknown]
